FAERS Safety Report 5984708-2 (Version None)
Quarter: 2008Q4

REPORT INFORMATION
  Report Type: 
  Country: None (occurrence: None)
  Receive Date: 20081208
  Receipt Date: 20081203
  Transmission Date: 20090506
  Serious: Yes (Other)
  Sender: FDA-Public Use
  Company Number: BR-ROXANE LABORATORIES, INC.-2008-RO-00330RO

PATIENT
  Age: 29 Year
  Sex: Female

DRUGS (2)
  1. ONDANSETRON [Suspect]
     Indication: MOTION SICKNESS
  2. GABAPENTIN [Concomitant]
     Indication: HEADACHE
     Dosage: 600MG

REACTIONS (1)
  - HEADACHE [None]
